FAERS Safety Report 8910841 (Version 2)
Quarter: 2013Q1

REPORT INFORMATION
  Report Type: Spontaneous
  Country: US (occurrence: US)
  Receive Date: 20121116
  Receipt Date: 20130325
  Transmission Date: 20140127
  Serious: Yes (Hospitalization, Disabling, Other)
  Sender: FDA-Public Use
  Company Number: US-PFIZER INC-2012282760

PATIENT
  Age: 39 Year
  Sex: Female

DRUGS (4)
  1. CHANTIX [Suspect]
     Indication: SMOKING CESSATION THERAPY
     Dosage: STARTER PACK AND THEN 1MG TWICE DAILY
     Dates: start: 20080213, end: 20080423
  2. METAMUCIL [Concomitant]
     Indication: IRRITABLE BOWEL SYNDROME
     Dosage: UNK
     Dates: start: 200305
  3. PAXIL CR [Concomitant]
     Indication: DEPRESSION
     Dosage: UNK
     Dates: start: 1997
  4. PAXIL CR [Concomitant]
     Indication: MAJOR DEPRESSION

REACTIONS (24)
  - Intentional overdose [Recovered/Resolved]
  - Suicide attempt [Recovered/Resolved]
  - Mental disorder [Unknown]
  - Psychotic disorder [Recovered/Resolved]
  - Major depression [Not Recovered/Not Resolved]
  - Bipolar disorder [Recovered/Resolved]
  - Hallucinations, mixed [Recovered/Resolved]
  - Aggression [Recovered/Resolved]
  - Generalised anxiety disorder [Recovered/Resolved]
  - Panic reaction [Unknown]
  - Dysphoria [Unknown]
  - Obsessive-compulsive disorder [Recovered/Resolved]
  - Delusion [Unknown]
  - Grandiosity [Unknown]
  - Tangentiality [Unknown]
  - Impulsive behaviour [Unknown]
  - Agoraphobia [Unknown]
  - Abnormal behaviour [Unknown]
  - Dysthymic disorder [Unknown]
  - Social phobia [Unknown]
  - Irritability [Recovered/Resolved]
  - Paranoia [Recovered/Resolved]
  - Confusional state [Unknown]
  - Psychogenic pain disorder [Unknown]
